FAERS Safety Report 4565891-2 (Version None)
Quarter: 2005Q1

REPORT INFORMATION
  Report Type: 
  Country: None (occurrence: None)
  Receive Date: 20050131
  Receipt Date: 20050120
  Transmission Date: 20050727
  Serious: Yes (Death, Other)
  Sender: FDA-Public Use
  Company Number: US-AMGEN-US108763

PATIENT
  Sex: Male
  Weight: 97.6 kg

DRUGS (5)
  1. NEUPOGEN [Suspect]
     Indication: CHEMOTHERAPY
     Dates: start: 20000610, end: 20000614
  2. ETOPOSIDE [Concomitant]
     Dates: start: 20000101, end: 20000609
  3. BLEOMYCIN [Concomitant]
     Dates: start: 20000101, end: 20000609
  4. CISPLATIN [Concomitant]
     Dates: start: 20000101, end: 20000609
  5. KYTRIL [Concomitant]
     Dates: start: 20000101

REACTIONS (9)
  - ATELECTASIS [None]
  - CARDIAC ARREST [None]
  - COUGH [None]
  - DYSPNOEA [None]
  - LOSS OF CONSCIOUSNESS [None]
  - PLEURAL ADHESION [None]
  - PULMONARY CONGESTION [None]
  - PULMONARY EMBOLISM [None]
  - TUMOUR NECROSIS [None]
